FAERS Safety Report 11478139 (Version 1)
Quarter: 2015Q3

REPORT INFORMATION
  Report Type: Spontaneous
  Country: US (occurrence: US)
  Receive Date: 20150909
  Receipt Date: 20150909
  Transmission Date: 20151125
  Serious: No
  Sender: FDA-Public Use
  Company Number: US-JAZZ-2014-US-011830

PATIENT
  Age: 52 Year
  Sex: Female

DRUGS (2)
  1. XYREM [Suspect]
     Active Substance: SODIUM OXYBATE
     Indication: NARCOLEPSY
     Dosage: 2.25 G, BID
     Route: 048
     Dates: start: 20140911, end: 20140913
  2. XYREM [Suspect]
     Active Substance: SODIUM OXYBATE
     Indication: CATAPLEXY

REACTIONS (8)
  - Malaise [Not Recovered/Not Resolved]
  - Panic attack [Unknown]
  - Decreased appetite [Not Recovered/Not Resolved]
  - Nervousness [Unknown]
  - Abdominal pain upper [Not Recovered/Not Resolved]
  - Palpitations [Unknown]
  - Feeling hot [Unknown]
  - Nausea [Not Recovered/Not Resolved]

NARRATIVE: CASE EVENT DATE: 20140911
